FAERS Safety Report 12118839 (Version 1)
Quarter: 2016Q1

REPORT INFORMATION
  Report Type: Spontaneous
  Country: US (occurrence: None)
  Receive Date: 20160225
  Receipt Date: 20160225
  Transmission Date: 20160526
  Serious: Yes (Other)
  Sender: FDA-Public Use
  Company Number: None

PATIENT
  Age: 51 Year
  Sex: Female

DRUGS (1)
  1. HUMIRA [Suspect]
     Active Substance: ADALIMUMAB
     Indication: PSORIATIC ARTHROPATHY
     Dosage: QOWEEK
     Route: 058
     Dates: start: 20151118, end: 20160110

REACTIONS (2)
  - Cough [None]
  - Influenza [None]

NARRATIVE: CASE EVENT DATE: 20160110
